FAERS Safety Report 5423736-2 (Version None)
Quarter: 2007Q3

REPORT INFORMATION
  Report Type: 
  Country: None (occurrence: None)
  Receive Date: 20070727
  Receipt Date: 20040228
  Transmission Date: 20080115
  Serious: Yes (Hospitalization)
  Sender: FDA-Public Use
  Company Number: THYM-10198

PATIENT
  Age: 59 Year
  Sex: Male
  Weight: 90 kg

DRUGS (19)
  1. THYMOGLOBULIN [Suspect]
     Indication: RENAL TRANSPLANT
     Dosage: 125 MG QD
     Dates: start: 20040120, end: 20040123
  2. THYMOGLOBULIN [Suspect]
     Indication: RENAL TRANSPLANT
     Dosage: 75 MG QD
     Dates: start: 20040124, end: 20040124
  3. RESTORIL [Concomitant]
  4. PREDNISONE [Concomitant]
  5. BACTRIM [Concomitant]
  6. CELLCEPT [Concomitant]
  7. ACYCLOVIR [Concomitant]
  8. FAMOTIDINE [Concomitant]
  9. NYSTATIN [Concomitant]
  10. PROGRAF [Concomitant]
  11. INFED [Concomitant]
  12. PREVACID [Concomitant]
  13. SENOKOT [Concomitant]
  14. POTASSIUM PHOSPHATES [Concomitant]
  15. DULCOLAX [Concomitant]
  16. FLOMAX [Concomitant]
  17. TUMS EX [Concomitant]
  18. NORVASC [Concomitant]
  19. TENORMIN [Concomitant]

REACTIONS (5)
  - ERECTILE DYSFUNCTION [None]
  - ILEUS [None]
  - SCROTAL DISORDER [None]
  - SKIN PAPILLOMA [None]
  - TREMOR [None]
